FAERS Safety Report 9410893 (Version 2)
Quarter: 2013Q3

REPORT INFORMATION
  Report Type: Spontaneous
  Country: AU (occurrence: NZ)
  Receive Date: 20130719
  Receipt Date: 20130814
  Transmission Date: 20140515
  Serious: Yes (Other)
  Sender: FDA-Public Use
  Company Number: NZ-B.I. PHARMACEUTICALS,INC./RIDGEFIELD-2013-AU-00863AU

PATIENT
  Age: 94 Year
  Sex: Female
  Weight: 64 kg

DRUGS (7)
  1. PRADAXA [Suspect]
     Indication: ATRIAL FIBRILLATION
     Dosage: 220 MG
     Dates: start: 20120725, end: 20120729
  2. METOPROLOL [Concomitant]
  3. ISOSORBIDE [Concomitant]
  4. DILTIAZEM [Concomitant]
  5. CANDESARTAN [Concomitant]
  6. OMEPRAZOLE [Concomitant]
     Dosage: 40 MG
  7. FRUSEMIDE [Concomitant]

REACTIONS (3)
  - Cerebrovascular accident [Recovered/Resolved]
  - Hemiparesis [Recovered/Resolved]
  - Rectal haemorrhage [Recovered/Resolved]
